FAERS Safety Report 7484963-6 (Version None)
Quarter: 2011Q2

REPORT INFORMATION
  Report Type: 
  Country: None (occurrence: None)
  Receive Date: 20110517
  Receipt Date: 20101003
  Transmission Date: 20111010
  Serious: No
  Sender: FDA-Public Use
  Company Number: US-BAYER-201023531BCC

PATIENT
  Sex: Female

DRUGS (1)
  1. NAPROXEN (ALEVE) [Suspect]
     Indication: RHEUMATOID ARTHRITIS
     Dosage: 2 DF, UNK
     Route: 048

REACTIONS (1)
  - ARTHRALGIA [None]
